FAERS Safety Report 16539830 (Version 1)
Quarter: 2019Q3

REPORT INFORMATION
  Report Type: Spontaneous
  Country: GB (occurrence: GB)
  Receive Date: 20190708
  Receipt Date: 20190708
  Transmission Date: 20191004
  Serious: Yes (Other)
  Sender: FDA-Public Use
  Company Number: GB-MYLANLABS-2019M1053961

PATIENT
  Age: 65 Year
  Sex: Male

DRUGS (1)
  1. CLOZARIL [Suspect]
     Active Substance: CLOZAPINE
     Indication: SCHIZOPHRENIA
     Dosage: UNK
     Route: 048
     Dates: start: 20190424, end: 201906

REACTIONS (4)
  - Drug intolerance [Unknown]
  - Therapy non-responder [Unknown]
  - Haemoglobin decreased [Unknown]
  - Malaise [Unknown]

NARRATIVE: CASE EVENT DATE: 2019
